FAERS Safety Report 9124018 (Version 3)
Quarter: 2013Q1

REPORT INFORMATION
  Report Type: Spontaneous
  Country: US (occurrence: US)
  Receive Date: 20130227
  Receipt Date: 20130326
  Transmission Date: 20140127
  Serious: Yes (Other)
  Sender: FDA-Public Use
  Company Number: US-AMGEN-USASP2013011826

PATIENT
  Age: 86 Year
  Sex: 0

DRUGS (2)
  1. PROLIA [Suspect]
     Indication: PRODUCT USED FOR UNKNOWN INDICATION
     Dosage: UNK
     Dates: start: 20100917
  2. GLUCOCORTICOIDS [Concomitant]

REACTIONS (1)
  - Osteonecrosis of jaw [Unknown]
